FAERS Safety Report 21323283 (Version 3)
Quarter: 2024Q3

REPORT INFORMATION
  Report Type: Report from Study
  Country: US (occurrence: US)
  Receive Date: 20220912
  Receipt Date: 20240726
  Transmission Date: 20241016
  Serious: Yes (Other)
  Sender: ABBVIE
  Company Number: US-ABBVIE-21K-163-4011231-00

PATIENT
  Sex: Male

DRUGS (2)
  1. VENETOCLAX [Suspect]
     Active Substance: VENETOCLAX
     Indication: Primary amyloidosis
     Dosage: FORM STRENGTH: 100 MG ?4 TABLET 400MG BY MOUTH DAILY
     Route: 048
  2. VENETOCLAX [Suspect]
     Active Substance: VENETOCLAX
     Indication: Primary amyloidosis
     Dosage: FORM STRENGTH: 100 MG ?4 TABLET 400MG BY MOUTH DAILY
     Route: 048

REACTIONS (3)
  - Cardiac pacemaker insertion [Unknown]
  - Product use in unapproved indication [Unknown]
  - Off label use [Unknown]
